FAERS Safety Report 9684000 (Version 2)
Quarter: 2014Q1

REPORT INFORMATION
  Report Type: Spontaneous
  Country: US (occurrence: US)
  Receive Date: 20131112
  Receipt Date: 20140103
  Transmission Date: 20141002
  Serious: Yes (Other)
  Sender: FDA-Public Use
  Company Number: US-ABBVIE-13P-163-1167345-00

PATIENT
  Sex: Female

DRUGS (3)
  1. DEPAKOTE [Suspect]
     Indication: PRODUCT USED FOR UNKNOWN INDICATION
  2. TRAZODONE [Suspect]
     Indication: PRODUCT USED FOR UNKNOWN INDICATION
  3. FLUPHENAZINE HYDROCHLORIDE [Suspect]
     Indication: PRODUCT USED FOR UNKNOWN INDICATION

REACTIONS (8)
  - Convulsion [Recovered/Resolved]
  - Feeling abnormal [Unknown]
  - Delusion [Unknown]
  - Anxiety [Unknown]
  - Eye disorder [Unknown]
  - Panic reaction [Unknown]
  - Hormone level abnormal [Unknown]
  - Balance disorder [Unknown]
